FAERS Safety Report 18950003 (Version 3)
Quarter: 2021Q2

REPORT INFORMATION
  Report Type: Report from Study
  Country: AR (occurrence: AR)
  Receive Date: 20210227
  Receipt Date: 20210408
  Transmission Date: 20210717
  Serious: Yes (Hospitalization, Other)
  Sender: FDA-Public Use
  Company Number: NVSC2021AR043189

PATIENT
  Age: 46 Year
  Sex: Male

DRUGS (5)
  1. SPIRONOLACTONE. [Concomitant]
     Active Substance: SPIRONOLACTONE
     Indication: PULMONARY HYPERTENSION
     Dosage: 50 MG, QD
     Route: 065
     Dates: start: 202012
  2. TASIGNA [Suspect]
     Active Substance: NILOTINIB
     Indication: CHRONIC MYELOID LEUKAEMIA
     Dosage: 300 MG, BID
     Route: 065
     Dates: start: 20151101
  3. TASIGNA [Suspect]
     Active Substance: NILOTINIB
     Dosage: 600 MG, BID
     Route: 048
  4. FUROSEMIDE. [Concomitant]
     Active Substance: FUROSEMIDE
     Indication: PULMONARY HYPERTENSION
     Dosage: 40 MG, QD (AS DIURETIC)
     Route: 065
  5. TASIGNA [Suspect]
     Active Substance: NILOTINIB
     Dosage: 600 MG, QD
     Route: 065

REACTIONS (17)
  - Gait disturbance [Unknown]
  - Hypoaesthesia [Unknown]
  - Limb injury [Unknown]
  - Cerebral haematoma [Unknown]
  - Accident [Unknown]
  - Bone pain [Unknown]
  - Facial paralysis [Recovered/Resolved]
  - Nervousness [Unknown]
  - Back pain [Unknown]
  - Head injury [Unknown]
  - Infection [Recovered/Resolved]
  - Incorrect dose administered [Unknown]
  - Inflammation [Unknown]
  - Swelling face [Unknown]
  - Musculoskeletal discomfort [Unknown]
  - Apraxia [Recovered/Resolved]
  - Vision blurred [Unknown]

NARRATIVE: CASE EVENT DATE: 20210214
